FAERS Safety Report 5597652-X (Version None)
Quarter: 2008Q1

REPORT INFORMATION
  Report Type: 
  Country: None (occurrence: None)
  Receive Date: 20080121
  Receipt Date: 20080111
  Transmission Date: 20080703
  Serious: Yes (Other)
  Sender: FDA-Public Use
  Company Number: GB-ABBOTT-08P-167-0433568-00

PATIENT
  Sex: Male

DRUGS (2)
  1. HUMIRA [Suspect]
     Indication: RHEUMATOID ARTHRITIS
     Dates: start: 20050101
  2. HEPARIN-FRACTION, SODIUM SALT [Concomitant]
     Indication: ANTICOAGULANT THERAPY
     Dates: start: 20080102

REACTIONS (3)
  - KNEE ARTHROPLASTY [None]
  - LOWER RESPIRATORY TRACT INFECTION [None]
  - THERAPY CESSATION [None]
